FAERS Safety Report 16744095 (Version 1)
Quarter: 2019Q3

REPORT INFORMATION
  Report Type: Report from Study
  Country: GB (occurrence: GB)
  Receive Date: 20190827
  Receipt Date: 20190827
  Transmission Date: 20191005
  Serious: Yes (Hospitalization, Disabling)
  Sender: FDA-Public Use
  Company Number: GB-ROCHE-2382949

PATIENT
  Sex: Male

DRUGS (3)
  1. TOCILIZUMAB. [Suspect]
     Active Substance: TOCILIZUMAB
     Indication: RHEUMATOID ARTHRITIS
     Dosage: MOST RECENT DOSE RECEIVED ON 10/JUL/2018
     Route: 042
     Dates: start: 20140812
  2. METHOTREXATE. [Concomitant]
     Active Substance: METHOTREXATE
     Route: 065
     Dates: start: 20090915, end: 20190515
  3. TOCILIZUMAB. [Suspect]
     Active Substance: TOCILIZUMAB
     Dosage: MOST RECENT DOSE RECEIVED ON 23/APR/2019
     Route: 042
     Dates: start: 20190219

REACTIONS (4)
  - Scrotal abscess [Recovered/Resolved]
  - Renal abscess [Recovered/Resolved with Sequelae]
  - Abscess limb [Recovered/Resolved]
  - Nephrectomy [Recovered/Resolved with Sequelae]

NARRATIVE: CASE EVENT DATE: 20180802
